FAERS Safety Report 6201632-0 (Version None)
Quarter: 2009Q2

REPORT INFORMATION
  Report Type: 
  Country: None (occurrence: None)
  Receive Date: 20090526
  Receipt Date: 20090520
  Transmission Date: 20091009
  Serious: Yes (Hospitalization)
  Sender: FDA-Public Use
  Company Number: US-ASTRAZENECA-2009UW11890

PATIENT
  Age: 54 Year
  Sex: Male

DRUGS (7)
  1. NEXIUM [Suspect]
     Route: 048
     Dates: start: 19980101
  2. ASPIRIN [Suspect]
  3. DAPAGLIFLOZIN [Concomitant]
     Indication: TYPE 2 DIABETES MELLITUS
  4. METFORMIN HCL [Concomitant]
     Indication: TYPE 2 DIABETES MELLITUS
     Route: 048
     Dates: start: 20080929
  5. PLACEBO [Concomitant]
     Indication: TYPE 2 DIABETES MELLITUS
     Route: 048
     Dates: start: 20080929
  6. BYSTOLIC [Concomitant]
     Dates: start: 20080527
  7. LOTREL [Concomitant]
     Dates: start: 20081110

REACTIONS (3)
  - CHEST PAIN [None]
  - HYPERHIDROSIS [None]
  - OESOPHAGITIS [None]
